FAERS Safety Report 7996051-0 (Version None)
Quarter: 2011Q4

REPORT INFORMATION
  Report Type: 
  Country: None (occurrence: None)
  Receive Date: 20111220
  Receipt Date: 20111209
  Transmission Date: 20120403
  Serious: Yes (Other)
  Sender: FDA-Public Use
  Company Number: PHFR2011GB05913

PATIENT
  Sex: Female

DRUGS (1)
  1. TEGRETOL-XR [Suspect]
     Dosage: UNK
     Route: 065

REACTIONS (3)
  - EPILEPSY [None]
  - BACK PAIN [None]
  - OEDEMA PERIPHERAL [None]
